FAERS Safety Report 4336311-8 (Version None)
Quarter: 2004Q2

REPORT INFORMATION
  Report Type: 
  Country: None (occurrence: None)
  Receive Date: 20040407
  Receipt Date: 20040323
  Transmission Date: 20050107
  Serious: Yes (Other)
  Sender: FDA-Public Use
  Company Number: 205449

PATIENT
  Sex: Male

DRUGS (1)
  1. RITUXAN [Suspect]

REACTIONS (2)
  - HEPATIC ENCEPHALOPATHY [None]
  - TUMOUR LYSIS SYNDROME [None]
